FAERS Safety Report 6761448-3 (Version None)
Quarter: 2010Q2

REPORT INFORMATION
  Report Type: 
  Country: None (occurrence: None)
  Receive Date: 20100608
  Receipt Date: 20100603
  Transmission Date: 20101027
  Serious: Yes (Death)
  Sender: FDA-Public Use
  Company Number: IN-ROCHE-707406

PATIENT
  Age: 3 Month
  Sex: Male
  Weight: 2.9 kg

DRUGS (2)
  1. GANCICLOVIR SODIUM [Suspect]
     Indication: CYTOMEGALOVIRUS INFECTION
     Dosage: DOSE: 10 MG/KG/24 HOURS DIVIDED ONCE EVERY 12 HOURS
     Route: 042
  2. IRON [Concomitant]
     Route: 048

REACTIONS (2)
  - KLEBSIELLA SEPSIS [None]
  - NEUTROPENIA [None]
